FAERS Safety Report 9389650 (Version 2)
Quarter: 2013Q3

REPORT INFORMATION
  Report Type: Spontaneous
  Country: US (occurrence: US)
  Receive Date: 20130708
  Receipt Date: 20130807
  Transmission Date: 20140515
  Serious: No
  Sender: FDA-Public Use
  Company Number: US-AMGEN-USASP2013044065

PATIENT
  Age: 59 Year
  Sex: Female
  Weight: 60.77 kg

DRUGS (1)
  1. ENBREL [Suspect]
     Indication: PRODUCT USED FOR UNKNOWN INDICATION
     Dosage: UNK UNK, 2 TIMES/WK
     Route: 058
     Dates: start: 20130223, end: 20130515

REACTIONS (3)
  - Migraine [Recovered/Resolved]
  - Hypoaesthesia oral [Recovered/Resolved]
  - Musculoskeletal stiffness [Recovered/Resolved]
